FAERS Safety Report 24899815 (Version 4)
Quarter: 2025Q2

REPORT INFORMATION
  Report Type: Spontaneous
  Country: US (occurrence: US)
  Receive Date: 20250129
  Receipt Date: 20250417
  Transmission Date: 20250717
  Serious: No
  Sender: NOVARTIS
  Company Number: US-002147023-NVSC2025US012937

PATIENT
  Sex: Female
  Weight: 80.2 kg

DRUGS (2)
  1. LETROZOLE [Suspect]
     Active Substance: LETROZOLE
     Indication: Breast cancer female
     Route: 065
     Dates: start: 201709
  2. IBRANCE [Suspect]
     Active Substance: PALBOCICLIB
     Indication: Breast cancer female
     Dosage: 100 MG, QD, (DAILY WITH BREAKFAST FOR 21 DAYS TAKE FOR 21 DAYS THEN 7 DAYS OFF)
     Route: 048
     Dates: start: 201709

REACTIONS (1)
  - Bone pain [Unknown]
